FAERS Safety Report 4608600-0 (Version None)
Quarter: 2005Q1

REPORT INFORMATION
  Report Type: 
  Country: None (occurrence: None)
  Receive Date: 20050315
  Receipt Date: 20050208
  Transmission Date: 20050727
  Serious: Yes (Hospitalization)
  Sender: FDA-Public Use
  Company Number: JP-JNJFOC-20041207554

PATIENT
  Age: 30 Year
  Sex: Female

DRUGS (4)
  1. RISPERDAL [Suspect]
     Indication: SCHIZOPHRENIA
     Route: 049
  2. ALPRAZOLAM [Concomitant]
     Route: 049
  3. FLUNITRAZEPAM [Concomitant]
  4. FUROSEMIDE [Concomitant]

REACTIONS (4)
  - ADRENAL ADENOMA [None]
  - BETA 2 MICROGLOBULIN INCREASED [None]
  - OEDEMA [None]
  - PITUITARY-DEPENDENT CUSHING'S SYNDROME [None]
